FAERS Safety Report 9076989 (Version 1)
Quarter: 2013Q1

REPORT INFORMATION
  Report Type: Report from Study
  Country: US (occurrence: US)
  Receive Date: 20130129
  Receipt Date: 20130129
  Transmission Date: 20140127
  Serious: No
  Sender: FDA-Public Use
  Company Number: US-ABBOTT-12P-163-0944488-00

PATIENT
  Sex: Female

DRUGS (2)
  1. HUMIRA 40 MG/0.8 ML PEN [Suspect]
     Indication: PSORIATIC ARTHROPATHY
     Route: 058
     Dates: start: 201105, end: 201203
  2. HUMIRA 40 MG/0.8 ML PEN [Suspect]
     Route: 058
     Dates: start: 201203

REACTIONS (6)
  - Drug dose omission [Unknown]
  - Drug dose omission [Unknown]
  - Injection site bruising [Unknown]
  - Injection site pain [Unknown]
  - Injection site pain [Unknown]
  - Psoriasis [Unknown]
